FAERS Safety Report 8601949-6 (Version None)
Quarter: 2012Q3

REPORT INFORMATION
  Report Type: 
  Country: None (occurrence: None)
  Receive Date: 20120817
  Receipt Date: 20120606
  Transmission Date: 20120928
  Serious: Yes (Other)
  Sender: FDA-Public Use
  Company Number: US-BRISTOL-MYERS SQUIBB COMPANY-16666836

PATIENT
  Sex: Male

DRUGS (3)
  1. METHOTREXATE [Suspect]
  2. DEXAMETHASONE [Concomitant]
  3. SPRYCEL [Suspect]
     Dosage: SPRYCEL 140 MG FOR A WEEK  LOWERED THE DOSE TO 70 MG

REACTIONS (1)
  - FEBRILE NEUTROPENIA [None]
